FAERS Safety Report 24623710 (Version 2)
Quarter: 2024Q4

REPORT INFORMATION
  Report Type: Spontaneous
  Country: BR (occurrence: BR)
  Receive Date: 20241115
  Receipt Date: 20241129
  Transmission Date: 20250114
  Serious: Yes (Other)
  Sender: BOEHRINGER INGELHEIM
  Company Number: BR-Komodo Health-a23aa000004CQu5AAG

PATIENT
  Age: 62 Year
  Sex: Male
  Weight: 47.4 kg

DRUGS (9)
  1. OLODATEROL HYDROCHLORIDE\TIOTROPIUM BROMIDE MONOHYDRATE [Suspect]
     Active Substance: OLODATEROL HYDROCHLORIDE\TIOTROPIUM BROMIDE MONOHYDRATE
     Indication: Lung disorder
     Dosage: FORM STRENGTH: 2.5 MCG + 2.5 MCG?2 PUFFS IN THE MORNING AND 2 PUFFS AT NIGHT (DOSAGE INCREASED)
     Dates: end: 2024
  2. OLODATEROL HYDROCHLORIDE\TIOTROPIUM BROMIDE MONOHYDRATE [Suspect]
     Active Substance: OLODATEROL HYDROCHLORIDE\TIOTROPIUM BROMIDE MONOHYDRATE
     Indication: Thyroidectomy
     Dosage: FORM STRENGTH: 2.5 MCG + 2.5 MCG?2 PUFFS ONCE A DAY
     Dates: start: 2023
  3. BUDESONIDE [Concomitant]
     Active Substance: BUDESONIDE
     Indication: Emphysema
  4. MORPHINE HYDROCHLORIDE [Concomitant]
     Active Substance: MORPHINE HYDROCHLORIDE
     Indication: Intervertebral disc protrusion
  5. PREGABALIN [Concomitant]
     Active Substance: PREGABALIN
     Indication: Intervertebral disc protrusion
     Dosage: 150MG, ONE TABLET AT NIGHT
  6. FLUOXETINE HYDROCHLORIDE [Concomitant]
     Active Substance: FLUOXETINE HYDROCHLORIDE
     Indication: Product used for unknown indication
  7. NIQUITIN [Concomitant]
     Active Substance: NICOTINE
     Indication: Product used for unknown indication
  8. Vitamina D [Concomitant]
     Indication: Product used for unknown indication
  9. Zinco [Concomitant]
     Indication: Product used for unknown indication

REACTIONS (7)
  - Lung neoplasm malignant [Not Recovered/Not Resolved]
  - Product use in unapproved indication [Recovered/Resolved]
  - Cough [Unknown]
  - Mobility decreased [Unknown]
  - Extra dose administered [Recovered/Resolved]
  - Gait disturbance [Unknown]
  - Walking aid user [Unknown]

NARRATIVE: CASE EVENT DATE: 20230101
